FAERS Safety Report 5787749-3 (Version None)
Quarter: 2008Q2

REPORT INFORMATION
  Report Type: 
  Country: None (occurrence: None)
  Receive Date: 20080624
  Receipt Date: 20080624
  Transmission Date: 20081010
  Serious: Yes (Hospitalization)
  Sender: FDA-Public Use
  Company Number: None

PATIENT
  Sex: Female

DRUGS (2)
  1. INVEGA [Suspect]
     Indication: ALCOHOLISM
     Dosage: 3, 6, THEN 9 MG  Q AM PO
     Route: 048
     Dates: start: 20080205, end: 20080530
  2. INVEGA [Suspect]
     Indication: BIPOLAR I DISORDER
     Dosage: 3, 6, THEN 9 MG  Q AM PO
     Route: 048
     Dates: start: 20080205, end: 20080530

REACTIONS (12)
  - ABASIA [None]
  - ASTHENIA [None]
  - BLOOD CREATINE PHOSPHOKINASE INCREASED [None]
  - DRUG SCREEN POSITIVE [None]
  - ELECTROCARDIOGRAM ST-T CHANGE [None]
  - EXTRAPYRAMIDAL DISORDER [None]
  - HYPOKINESIA [None]
  - MENTAL STATUS CHANGES [None]
  - MUSCLE RIGIDITY [None]
  - MUSCLE TWITCHING [None]
  - NEUROLEPTIC MALIGNANT SYNDROME [None]
  - SPEECH DISORDER [None]
